FAERS Safety Report 8128462-7 (Version None)
Quarter: 2012Q1

REPORT INFORMATION
  Report Type: 
  Country: None (occurrence: None)
  Receive Date: 20120210
  Receipt Date: 20120131
  Transmission Date: 20120608
  Serious: Yes (Hospitalization, Other)
  Sender: FDA-Public Use
  Company Number: FR-JNJFOC-20120204806

PATIENT
  Age: 26 Year
  Sex: Female

DRUGS (17)
  1. DOXORUBICIN HCL [Suspect]
     Dosage: CYCLE 1
     Route: 040
  2. IFOSFAMIDE [Suspect]
     Indication: SPINDLE CELL SARCOMA
     Dosage: CYCLE 4
     Route: 042
  3. NEUPOGEN [Concomitant]
     Route: 065
  4. METOCLOPRAMIDE [Concomitant]
     Route: 042
  5. ONDANSETRON [Concomitant]
     Route: 065
  6. IFOSFAMIDE [Suspect]
     Dosage: CYCLE 5
     Route: 042
  7. NEUPOGEN [Concomitant]
     Indication: PALLIATIVE CARE
     Route: 065
  8. ONDANSETRON [Concomitant]
     Indication: PROPHYLAXIS OF NAUSEA AND VOMITING
     Route: 065
  9. IFOSFAMIDE [Suspect]
     Dosage: CYCLE 2
     Route: 042
  10. DOXORUBICIN HCL [Suspect]
     Indication: SPINDLE CELL SARCOMA
     Dosage: CYCLE 4
     Route: 040
  11. DOXORUBICIN HCL [Suspect]
     Dosage: CYCLE 2
     Route: 040
  12. IFOSFAMIDE [Suspect]
     Dosage: CYCLE 3
     Route: 042
  13. DOXORUBICIN HCL [Suspect]
     Dosage: CYCLE 3
     Route: 040
  14. IFOSFAMIDE [Suspect]
     Dosage: CYCLE 1
     Route: 042
  15. DOXORUBICIN HCL [Suspect]
     Dosage: CYCLE 5
     Route: 040
  16. NEUPOGEN [Concomitant]
     Route: 065
  17. METOCLOPRAMIDE [Concomitant]
     Indication: PROPHYLAXIS OF NAUSEA AND VOMITING
     Route: 042

REACTIONS (4)
  - PREMATURE DELIVERY [None]
  - NAUSEA [None]
  - ALOPECIA [None]
  - MATERNAL EXPOSURE DURING PREGNANCY [None]
